FAERS Safety Report 14753203 (Version 1)
Quarter: 2018Q2

REPORT INFORMATION
  Report Type: Spontaneous
  Country: US (occurrence: US)
  Receive Date: 20180412
  Receipt Date: 20180412
  Transmission Date: 20180711
  Serious: Yes (Life-Threatening, Other)
  Sender: FDA-Public Use
  Company Number: US-JNJFOC-20180412517

PATIENT

DRUGS (1)
  1. EVITHROM [Suspect]
     Active Substance: THROMBIN HUMAN
     Indication: HAEMOSTASIS
     Route: 065

REACTIONS (11)
  - Sepsis [Unknown]
  - Cerebrovascular accident [Unknown]
  - Surgery [Unknown]
  - Myocardial infarction [Unknown]
  - Transfusion [Unknown]
  - Post procedural complication [Unknown]
  - Shock [Unknown]
  - Hypotension [Unknown]
  - Procedural complication [Unknown]
  - Respiratory failure [Unknown]
  - Renal failure [Unknown]
